FAERS Safety Report 7913900-2 (Version None)
Quarter: 2011Q4

REPORT INFORMATION
  Report Type: 
  Country: None (occurrence: None)
  Receive Date: 20111115
  Receipt Date: 20111113
  Transmission Date: 20120403
  Serious: Yes (Disabling, Other)
  Sender: FDA-Public Use
  Company Number: US-PFIZER INC-2011277657

PATIENT
  Sex: Male

DRUGS (3)
  1. VIAGRA [Suspect]
     Dosage: UNK
  2. CIALIS [Suspect]
     Dosage: UNK
  3. CELEBREX [Suspect]
     Dosage: UNK

REACTIONS (5)
  - HYPOAESTHESIA [None]
  - NASOPHARYNGITIS [None]
  - THINKING ABNORMAL [None]
  - PAIN [None]
  - TREMOR [None]
